APPROVED DRUG PRODUCT: METHYLPHENIDATE HYDROCHLORIDE
Active Ingredient: METHYLPHENIDATE HYDROCHLORIDE
Strength: 5MG
Dosage Form/Route: TABLET;ORAL
Application: A040404 | Product #001
Applicant: ABLE LABORATORIES INC
Approved: Mar 29, 2001 | RLD: No | RS: No | Type: DISCN